FAERS Safety Report 7906294-X (Version None)
Quarter: 2011Q4

REPORT INFORMATION
  Report Type: 
  Country: None (occurrence: None)
  Receive Date: 20111109
  Receipt Date: 20111109
  Transmission Date: 20120403
  Serious: Yes (Hospitalization)
  Sender: FDA-Public Use
  Company Number: None

PATIENT
  Sex: Female
  Weight: 99.7913 kg

DRUGS (2)
  1. SULFAMETHOXAZOLE AND TRIMETHOPRIM [Suspect]
     Indication: STAPHYLOCOCCAL INFECTION
     Dosage: 800/160 TABS 1 TAB, 2 X A DAY ORAL
     Route: 048
     Dates: start: 20110930, end: 20111006
  2. SULFAMETHOXAZOLE AND TRIMETHOPRIM [Suspect]
     Indication: CELLULITIS
     Dosage: 800/160 TABS 1 TAB, 2 X A DAY ORAL
     Route: 048
     Dates: start: 20110930, end: 20111006

REACTIONS (8)
  - DAYDREAMING [None]
  - OROPHARYNGEAL PAIN [None]
  - DIZZINESS [None]
  - NAUSEA [None]
  - AFFECTIVE DISORDER [None]
  - BRONCHITIS [None]
  - CHILLS [None]
  - CHEST PAIN [None]
